FAERS Safety Report 8065408-4 (Version None)
Quarter: 2012Q1

REPORT INFORMATION
  Report Type: 
  Country: None (occurrence: None)
  Receive Date: 20120117
  Receipt Date: 20120111
  Transmission Date: 20120608
  Serious: Yes (Hospitalization)
  Sender: FDA-Public Use
  Company Number: 7106094

PATIENT
  Age: 32 Year
  Sex: Female

DRUGS (2)
  1. CLARITHROMYCIN [Concomitant]
  2. LEVOTHYROXINE SODIUM [Suspect]
     Indication: POST PROCEDURAL HYPOTHYROIDISM
     Dosage: 100 MCG ON ONE DAY, 125 MCG ON THE DAY AFTER, ORAL
     Route: 048

REACTIONS (4)
  - SUFFOCATION FEELING [None]
  - SWOLLEN TONGUE [None]
  - RASH PUSTULAR [None]
  - RASH [None]
